FAERS Safety Report 5491138-9 (Version None)
Quarter: 2007Q4

REPORT INFORMATION
  Report Type: 
  Country: None (occurrence: None)
  Receive Date: 20071019
  Receipt Date: 20071009
  Transmission Date: 20080405
  Serious: Yes (Hospitalization)
  Sender: FDA-Public Use
  Company Number: US-PFIZER INC-2007083961

PATIENT
  Sex: Male
  Weight: 79.8 kg

DRUGS (12)
  1. SUTENT [Suspect]
     Indication: HEPATIC NEOPLASM MALIGNANT
     Route: 048
     Dates: start: 20070912, end: 20070928
  2. ATIVAN [Concomitant]
  3. COMPAZINE [Concomitant]
  4. ZOFRAN [Concomitant]
  5. HUMALOG [Concomitant]
     Dosage: TEXT:100 UNITS/ML
  6. HYDROCHLOROTHIAZIDE [Concomitant]
  7. LANTUS [Concomitant]
     Dosage: TEXT:100 UNITS/ML
  8. LISINOPRIL [Concomitant]
  9. METOPROLOL SUCCINATE [Concomitant]
  10. PRAVACHOL [Concomitant]
  11. PRILOSEC [Concomitant]
  12. SPIRONOLACTONE [Concomitant]

REACTIONS (4)
  - COORDINATION ABNORMAL [None]
  - LEUKOPENIA [None]
  - NEUTROPENIA [None]
  - THROMBOCYTOPENIA [None]
